FAERS Safety Report 15082661 (Version 1)
Quarter: 2018Q2

REPORT INFORMATION
  Report Type: Spontaneous
  Country: US (occurrence: US)
  Receive Date: 20180628
  Receipt Date: 20180628
  Transmission Date: 20180711
  Serious: No
  Sender: FDA-Public Use
  Company Number: US-ASTRAZENECA-2018SE71637

PATIENT
  Sex: Female

DRUGS (2)
  1. BYETTA [Suspect]
     Active Substance: EXENATIDE
     Dosage: 5 MCG
     Route: 065
  2. BYETTA [Suspect]
     Active Substance: EXENATIDE
     Dosage: 10 MCG
     Route: 065

REACTIONS (1)
  - Blood glucose increased [Unknown]
